FAERS Safety Report 13242159 (Version 2)
Quarter: 2017Q2

REPORT INFORMATION
  Report Type: Report from Study
  Country: US (occurrence: US)
  Receive Date: 20170217
  Receipt Date: 20170418
  Transmission Date: 20170830
  Serious: Yes (Other)
  Sender: FDA-Public Use
  Company Number: US-BAYER-2016-239018

PATIENT

DRUGS (2)
  1. XOFIGO [Suspect]
     Active Substance: RADIUM RA-223 DICHLORIDE
     Indication: HORMONE-REFRACTORY PROSTATE CANCER
     Dosage: 132.00 UCI, ONCE EVERY 28 DAYS
     Route: 042
     Dates: start: 20161114
  2. XOFIGO [Suspect]
     Active Substance: RADIUM RA-223 DICHLORIDE
     Indication: METASTASES TO BONE
     Dosage: 132.00 UCI, ONCE EVERY 28 DAYS
     Route: 042
     Dates: start: 20161228

REACTIONS (3)
  - Pneumonia [None]
  - Fatigue [None]
  - Malaise [None]
